FAERS Safety Report 6483829-8 (Version None)
Quarter: 2009Q4

REPORT INFORMATION
  Report Type: 
  Country: None (occurrence: None)
  Receive Date: 20091123
  Receipt Date: 20090724
  Transmission Date: 20100525
  Serious: No
  Sender: FDA-Public Use
  Company Number: 8049469

PATIENT
  Age: 52 Year
  Sex: Female
  Weight: 69.4 kg

DRUGS (6)
  1. CIMZIA [Suspect]
     Indication: CROHN'S DISEASE
     Dosage: 400 MG SC
     Route: 058
     Dates: start: 20090101
  2. CIPRO /00697201/ [Concomitant]
  3. D [Concomitant]
  4. JANUMET [Concomitant]
  5. MULTIGEN-AL [Concomitant]
  6. FLAGYL [Concomitant]

REACTIONS (4)
  - HEADACHE [None]
  - OROPHARYNGEAL PAIN [None]
  - SINUS CONGESTION [None]
  - TONSILLAR INFLAMMATION [None]
